FAERS Safety Report 9305934 (Version 1)
Quarter: 2013Q1

REPORT INFORMATION
  Report Type: Spontaneous
  Country: IT (occurrence: None)
  Receive Date: 20130204
  Receipt Date: 20130204
  Transmission Date: 20140127
  Serious: Yes (Hospitalization)
  Sender: FDA-Public Use
  Company Number: 2013SA001426

PATIENT
  Age: 73 Year
  Sex: Male

DRUGS (13)
  1. CARVEDILOL (CARVEDILOL) [Suspect]
     Indication: CARDIAC DISORDER
     Route: 048
     Dates: start: 20121226, end: 20130108
  2. TRIATEC [Suspect]
     Route: 048
     Dates: start: 20121226, end: 20130108
  3. LASIX [Suspect]
     Route: 048
     Dates: start: 20121226, end: 20130108
  4. LANSOPRAZOLE (LANSOPRAZOLE) [Suspect]
     Route: 048
     Dates: start: 20121226, end: 20130108
  5. LEVOFLOXACIN [Suspect]
     Dates: start: 20121226, end: 20130101
  6. METFORMIN [Suspect]
     Route: 048
     Dates: start: 20121226, end: 20121229
  7. NITRO-DUR [Suspect]
     Route: 062
     Dates: start: 20121226, end: 20130108
  8. CARDIOASPIRIN [Suspect]
     Route: 048
     Dates: start: 20121226, end: 20121229
  9. BRONCOVALEAS [Suspect]
     Dates: start: 20130101, end: 20130107
  10. CLENIL [Suspect]
     Dates: start: 20121226, end: 20130101
  11. CLEXANE [Concomitant]
  12. MULTI-VITAMIN [Concomitant]
  13. TORVAST [Concomitant]

REACTIONS (1)
  - Tendonitis [None]
